FAERS Safety Report 6635123-X (Version None)
Quarter: 2010Q1

REPORT INFORMATION
  Report Type: 
  Country: None (occurrence: None)
  Receive Date: 20100315
  Receipt Date: 20100303
  Transmission Date: 20100710
  Serious: Yes (Hospitalization)
  Sender: FDA-Public Use
  Company Number: PHHY2010IE13290

PATIENT
  Age: 77 Year
  Sex: Female

DRUGS (5)
  1. RASILEZ [Suspect]
     Indication: HYPERTENSION
     Dosage: 150 MG
  2. RASILEZ [Suspect]
     Dosage: 300 MG
  3. RASILEZ [Suspect]
     Dosage: UNK
  4. SYMBICORT [Concomitant]
  5. ASPIRIN [Concomitant]

REACTIONS (6)
  - DYSPNOEA [None]
  - MALAISE [None]
  - OEDEMA PERIPHERAL [None]
  - PALLOR [None]
  - RIGHT VENTRICULAR FAILURE [None]
  - SILENT MYOCARDIAL INFARCTION [None]
